FAERS Safety Report 4590660-7 (Version None)
Quarter: 2005Q1

REPORT INFORMATION
  Report Type: 
  Country: None (occurrence: None)
  Receive Date: 20050224
  Receipt Date: 20041015
  Transmission Date: 20050727
  Serious: Yes (Hospitalization)
  Sender: FDA-Public Use
  Company Number: FR-NOVOPROD-239878

PATIENT
  Age: 46 Year
  Sex: Female
  Weight: 51 kg

DRUGS (6)
  1. NORDITROPIN SIMPLEXX [Suspect]
     Indication: POSTPARTUM HYPOPITUITARISM
     Dosage: .2 MG, QD
     Dates: start: 20041008, end: 20041015
  2. NORDITROPIN SIMPLEXX [Suspect]
     Dates: start: 20040101
  3. HYDROCORTISONE [Concomitant]
     Indication: RENAL FAILURE
     Dosage: 1 TAB, QD
     Route: 048
     Dates: start: 19850701
  4. LEVOTHYROX [Concomitant]
     Indication: THYROID DISORDER
     Dosage: 75 UG, QD
     Route: 048
     Dates: start: 19850701
  5. AVADEN [Concomitant]
     Indication: ILL-DEFINED DISORDER
     Dosage: 1 TAB, QD
     Dates: start: 20040901
  6. TRIPHASIL-21 [Concomitant]
     Indication: ORAL CONTRACEPTION
     Route: 048
     Dates: start: 19850101, end: 20040901

REACTIONS (7)
  - BLOOD THYROID STIMULATING HORMONE DECREASED [None]
  - HOT FLUSH [None]
  - INSULIN-LIKE GROWTH FACTOR DECREASED [None]
  - PALPITATIONS [None]
  - PRURITUS [None]
  - SINUS TACHYCARDIA [None]
  - SYNCOPE VASOVAGAL [None]
